FAERS Safety Report 8514101-X (Version None)
Quarter: 2012Q3

REPORT INFORMATION
  Report Type: 
  Country: None (occurrence: None)
  Receive Date: 20120717
  Receipt Date: 20120709
  Transmission Date: 20120928
  Serious: Yes (Hospitalization)
  Sender: FDA-Public Use
  Company Number: US-UCBSA-060773

PATIENT
  Age: 58 Year
  Sex: Female

DRUGS (8)
  1. MULTI-VITAMIN [Concomitant]
     Dosage: DAILY
  2. OXYCODONE HCL [Concomitant]
     Route: 048
  3. CETIRIZINE [Concomitant]
     Dosage: 10 MG ONE DAILY
     Route: 048
  4. LEVOTHYROXINE SODIUM [Concomitant]
     Route: 048
  5. TRILIPIX [Concomitant]
     Indication: BLOOD CHOLESTEROL
     Dosage: DAILY DOSE : 135 MG
     Dates: start: 20120101
  6. DOXYCYCLINE [Concomitant]
     Indication: SMALL INTESTINAL BACTERIAL OVERGROWTH
     Dates: start: 20120101, end: 20120601
  7. CIMZIA [Suspect]
     Dosage: 400 MG EVERY 4 WEEKS
  8. CIMZIA [Suspect]
     Indication: CROHN'S DISEASE
     Dates: start: 20101101

REACTIONS (1)
  - PANCREATITIS ACUTE [None]
